FAERS Safety Report 9999308 (Version 1)
Quarter: 2014Q1

REPORT INFORMATION
  Report Type: Spontaneous
  Country: US (occurrence: US)
  Receive Date: 20140312
  Receipt Date: 20140312
  Transmission Date: 20141002
  Serious: Yes (Other)
  Sender: FDA-Public Use
  Company Number: US-AMGEN-USASP2014017324

PATIENT
  Age: 35 Year
  Sex: Male

DRUGS (1)
  1. ENBREL [Suspect]
     Indication: PSORIASIS
     Dosage: 50 MG, EVERY 7 TO 10 DAYS
     Route: 065
     Dates: start: 20071031

REACTIONS (2)
  - Varicocele [Recovered/Resolved]
  - Spermatozoa morphology abnormal [Unknown]
